FAERS Safety Report 14301271 (Version 2)
Quarter: 2018Q1

REPORT INFORMATION
  Report Type: Spontaneous
  Country: BE (occurrence: BE)
  Receive Date: 20171219
  Receipt Date: 20180305
  Transmission Date: 20180509
  Serious: Yes (Hospitalization, Other)
  Sender: FDA-Public Use
  Company Number: BE-GLAXOSMITHKLINE-B0848543A

PATIENT
  Age: 16 Year
  Sex: Female

DRUGS (2)
  1. MONTELUKAST [Concomitant]
     Active Substance: MONTELUKAST SODIUM
     Indication: ASTHMA
     Dosage: 10 MG, QD
     Route: 065
  2. ADVAIR HFA [Suspect]
     Active Substance: FLUTICASONE PROPIONATE\SALMETEROL XINAFOATE
     Indication: PRODUCT USED FOR UNKNOWN INDICATION
     Dosage: SALMETEROL XINAFOATE 25MCG + FLUTICASONE PROPIONATE 50MCG. NORMAL DOSE 1 INHALATION TWICE DAILY
     Route: 055

REACTIONS (17)
  - Intentional overdose [Unknown]
  - Sinus tachycardia [Recovered/Resolved]
  - Hyperlactacidaemia [Unknown]
  - Sympathomimetic effect [Unknown]
  - Palpitations [Unknown]
  - Blood creatine phosphokinase increased [Unknown]
  - Hypophosphataemia [Recovered/Resolved]
  - Hypokalaemia [Recovered/Resolved]
  - Chest pain [Unknown]
  - Metabolic acidosis [Unknown]
  - Suicide attempt [Unknown]
  - Anxiety [Unknown]
  - Tremor [Unknown]
  - Lactic acidosis [Recovered/Resolved]
  - Electrocardiogram ST segment depression [Recovered/Resolved]
  - Intentional self-injury [Unknown]
  - Hyperhidrosis [Unknown]
